FAERS Safety Report 10508528 (Version 2)
Quarter: 2014Q4

REPORT INFORMATION
  Report Type: Spontaneous
  Country: JP (occurrence: JP)
  Receive Date: 20141009
  Receipt Date: 20141009
  Transmission Date: 20150528
  Serious: Yes (Other)
  Sender: FDA-Public Use
  Company Number: JP-GLAXOSMITHKLINE-B1036346A

PATIENT
  Age: 65 Year
  Sex: Female

DRUGS (2)
  1. VALACICLOVIR HYDROCHLORIDE [Suspect]
     Active Substance: VALACYCLOVIR HYDROCHLORIDE
     Indication: HERPES ZOSTER
     Route: 048
     Dates: start: 20140917, end: 20140919
  2. ARASENA-A [Concomitant]
     Active Substance: VIDARABINE
     Indication: HERPES ZOSTER
     Route: 050
     Dates: start: 20140915, end: 20140916

REACTIONS (1)
  - Renal impairment [Recovered/Resolved]

NARRATIVE: CASE EVENT DATE: 20140919
